FAERS Safety Report 7020436-2 (Version None)
Quarter: 2010Q3

REPORT INFORMATION
  Report Type: 
  Country: None (occurrence: None)
  Receive Date: 20100927
  Receipt Date: 20100903
  Transmission Date: 20110219
  Serious: Yes (Hospitalization, Other)
  Sender: FDA-Public Use
  Company Number: TR-ACCORD-005397

PATIENT
  Age: 40 Year
  Sex: Female

DRUGS (7)
  1. MYCOPHENOLATE MOFETIL [Suspect]
     Indication: RENAL TRANSPLANT
  2. EVEROLIMUS (EVEROLIMUS) [Suspect]
     Indication: RENAL TRANSPLANT
  3. PREDNISOLONE [Concomitant]
  4. ASPIRIN [Concomitant]
  5. FLUVASTATIN [Concomitant]
  6. FAMOTIDINE [Concomitant]
  7. METOPROLOL SUCCINATE [Concomitant]

REACTIONS (10)
  - AGITATION [None]
  - ANAEMIA [None]
  - BLOOD CREATININE INCREASED [None]
  - BLOOD UREA INCREASED [None]
  - HAEMOLYSIS [None]
  - HEADACHE [None]
  - IRRITABILITY [None]
  - KIDNEY TRANSPLANT REJECTION [None]
  - PYREXIA [None]
  - THROMBOTIC THROMBOCYTOPENIC PURPURA [None]
